FAERS Safety Report 18019548 (Version 2)
Quarter: 2021Q3

REPORT INFORMATION
  Report Type: Report from Study
  Country: CA (occurrence: CA)
  Receive Date: 20200714
  Receipt Date: 20210907
  Transmission Date: 20211014
  Serious: Yes (Hospitalization)
  Sender: FDA-Public Use
  Company Number: CA-ACCORD-189223

PATIENT
  Age: 84 Year
  Sex: Male

DRUGS (2)
  1. LEUPRORELIN [Suspect]
     Active Substance: LEUPROLIDE ACETATE
     Indication: PROSTATE CANCER
     Dosage: STRENGTH 29.2 MG?POWDER FOR SUSPENSION, SUSTAINEDRELEASE, 1 EVERY 3 MONTHS
     Route: 065
  2. BICALUTAMIDE. [Suspect]
     Active Substance: BICALUTAMIDE
     Indication: PRODUCT USED FOR UNKNOWN INDICATION
     Route: 048

REACTIONS (8)
  - Decreased appetite [Unknown]
  - Mobility decreased [Unknown]
  - Tachycardia [Unknown]
  - Bladder disorder [Unknown]
  - Cardiac murmur [Unknown]
  - Fatigue [Unknown]
  - Asthenia [Unknown]
  - Confusional state [Unknown]
